FAERS Safety Report 5285455-5 (Version None)
Quarter: 2007Q1

REPORT INFORMATION
  Report Type: 
  Country: None (occurrence: None)
  Receive Date: 20070328
  Receipt Date: 20070322
  Transmission Date: 20070707
  Serious: Yes (Death)
  Sender: FDA-Public Use
  Company Number: 233040

PATIENT
  Age: 77 Year
  Sex: Female

DRUGS (16)
  1. RANIBIZUMAB(RANIBIZUMAB) PWDR + SOLVENT,INJECTION SOLN [Suspect]
     Indication: MACULAR DEGENERATION
     Dosage: INTRAVITREAL
     Dates: start: 20060320, end: 20060913
  2. SODIUM BICARBONATE IN PLASTIC CONTAINER [Suspect]
     Dosage: 1 AMP
  3. LASIX [Concomitant]
  4. LISINOPRIL [Concomitant]
  5. LANOXIN [Concomitant]
  6. ACIPHEX [Concomitant]
  7. METHOTREXATE [Concomitant]
  8. CELEBREX [Concomitant]
  9. XANAX [Concomitant]
  10. LORTAB [Concomitant]
  11. FOLIC ACID [Concomitant]
  12. LIPITOR [Concomitant]
  13. MACUGEN (PEGAPTANIB) [Concomitant]
  14. LUCENTIS [Concomitant]
  15. PLAVIX [Concomitant]
  16. NITROGLYCERIN [Concomitant]

REACTIONS (11)
  - ASTHENIA [None]
  - BLOOD PRESSURE DECREASED [None]
  - BRAIN NATRIURETIC PEPTIDE INCREASED [None]
  - CARDIAC ARREST [None]
  - CHEST PAIN [None]
  - CONFUSIONAL STATE [None]
  - DISORIENTATION [None]
  - FIBRIN D DIMER INCREASED [None]
  - HYPERPYREXIA [None]
  - PYELONEPHRITIS [None]
  - RESPIRATORY ARREST [None]
